FAERS Safety Report 25450904 (Version 1)
Quarter: 2025Q2

REPORT INFORMATION
  Report Type: Spontaneous
  Country: FR (occurrence: FR)
  Receive Date: 20250618
  Receipt Date: 20250618
  Transmission Date: 20250716
  Serious: Yes (Hospitalization, Other)
  Sender: SANOFI AVENTIS
  Company Number: None

PATIENT
  Age: 74 Year
  Sex: Female
  Weight: 74 kg

DRUGS (1)
  1. LOVENOX [Suspect]
     Active Substance: ENOXAPARIN SODIUM
     Indication: Prophylaxis
     Dosage: 4000 IU, QD (IN THE EVENING AT 8:00 PM)
     Route: 042
     Dates: start: 20240425, end: 20240504

REACTIONS (4)
  - Heparin-induced thrombocytopenia [Recovered/Resolved with Sequelae]
  - Adrenal cortex necrosis [Recovered/Resolved with Sequelae]
  - Pulmonary embolism [Recovered/Resolved]
  - Administration site necrosis [Recovered/Resolved]

NARRATIVE: CASE EVENT DATE: 20240430
